FAERS Safety Report 12248148 (Version 1)
Quarter: 2016Q2

REPORT INFORMATION
  Report Type: Spontaneous
  Country: US (occurrence: US)
  Receive Date: 20160408
  Receipt Date: 20160408
  Transmission Date: 20160815
  Serious: Yes (Other)
  Sender: FDA-Public Use
  Company Number: US-HOSPIRA-3238619

PATIENT
  Age: 63 Year
  Sex: Female

DRUGS (1)
  1. HEPARIN SODIUM. [Suspect]
     Active Substance: HEPARIN SODIUM
     Indication: PRODUCT USED FOR UNKNOWN INDICATION
     Route: 041

REACTIONS (3)
  - Heparin-induced thrombocytopenia [Recovered/Resolved with Sequelae]
  - Thrombosis in device [Recovered/Resolved with Sequelae]
  - Ischaemic limb pain [Recovered/Resolved with Sequelae]
